FAERS Safety Report 8907446 (Version 2)
Quarter: 2012Q4

REPORT INFORMATION
  Report Type: 
  Country: JP (occurrence: JP)
  Receive Date: 20121114
  Receipt Date: 20121204
  Transmission Date: 20130627
  Serious: Yes (Death, Hospitalization)
  Sender: FDA-Public Use
  Company Number: JP-SANOFI-AVENTIS-2012SA082632

PATIENT
  Age: 73 Year
  Sex: Male
  Weight: 48.6 kg

DRUGS (13)
  1. TAXOTERE [Suspect]
     Indication: SQUAMOUS CELL CARCINOMA OF LUNG
     Dosage: 1st course
     Route: 041
     Dates: start: 20100928, end: 20100928
  2. TAXOTERE [Suspect]
     Indication: SQUAMOUS CELL CARCINOMA OF LUNG
     Dosage: 2nd course
     Route: 041
     Dates: start: 2010, end: 2010
  3. TAXOTERE [Suspect]
     Indication: SQUAMOUS CELL CARCINOMA OF LUNG
     Dosage: 3rd course
     Route: 041
     Dates: start: 20101112, end: 20101112
  4. CEFEPIME HYDROCHLORIDE [Concomitant]
     Indication: NEUTROPENIC FEVER
     Route: 041
     Dates: start: 20101117, end: 20101122
  5. NEU-UP [Concomitant]
     Indication: NEUTROPHIL COUNT DECREASED
     Route: 058
     Dates: start: 20101119, end: 20101121
  6. IMIDAPRIL HYDROCHLORIDE [Concomitant]
     Indication: PREVENTION
     Route: 048
     Dates: start: 20091211, end: 20101129
  7. ALOSITOL [Concomitant]
     Indication: HYPERURICEMIA
     Route: 048
     Dates: start: 20091211, end: 20101129
  8. ULCERLMIN [Concomitant]
     Indication: ESOPHAGITIS
     Route: 048
     Dates: start: 20100521, end: 20101129
  9. LANSOPRAZOLE [Concomitant]
     Indication: ESOPHAGITIS
     Route: 048
     Dates: start: 20100701, end: 20101129
  10. LANSOPRAZOLE [Concomitant]
     Indication: GASTRITIS
     Route: 048
     Dates: start: 20100701, end: 20101129
  11. NAIXAN [Concomitant]
     Indication: TUMOR ASSOCIATED FEVER
     Route: 048
     Dates: start: 20100611, end: 20101129
  12. DEXAMETHASONE [Concomitant]
  13. MAGLAX [Concomitant]
     Indication: CONSTIPATION
     Route: 048
     Dates: start: 20100521, end: 20101129

REACTIONS (8)
  - Interstitial lung disease [Fatal]
  - Condition aggravated [Fatal]
  - Cough [Fatal]
  - Dyspnoea [Fatal]
  - Hypoxia [Fatal]
  - Cell marker increased [Fatal]
  - PO2 decreased [Fatal]
  - White blood cell count increased [Fatal]
